FAERS Safety Report 5352772-X (Version None)
Quarter: 2007Q2

REPORT INFORMATION
  Report Type: 
  Country: None (occurrence: None)
  Receive Date: 20070611
  Receipt Date: 20070531
  Transmission Date: 20071010
  Serious: Yes (Hospitalization)
  Sender: FDA-Public Use
  Company Number: GB-ELI_LILLY_AND_COMPANY-GB200705005047

PATIENT
  Age: 43 Year
  Sex: Male
  Weight: 82 kg

DRUGS (2)
  1. STRATTERA [Suspect]
     Dosage: 80 MG, UNK
     Route: 048
     Dates: start: 20070201, end: 20070511
  2. CONCERTA [Concomitant]
     Dosage: 72 MG, UNK
     Route: 048

REACTIONS (1)
  - BIPOLAR DISORDER [None]
